FAERS Safety Report 7684257-X (Version None)
Quarter: 2011Q3

REPORT INFORMATION
  Report Type: 
  Country: None (occurrence: None)
  Receive Date: 20110815
  Receipt Date: 20110802
  Transmission Date: 20111222
  Serious: Yes (Other)
  Sender: FDA-Public Use
  Company Number: US-CELGENEUS-163-21880-11080622

PATIENT

DRUGS (1)
  1. REVLIMID [Suspect]
     Dosage: 5-25MG
     Route: 048

REACTIONS (1)
  - HYPERTHYROIDISM [None]
